FAERS Safety Report 23892311 (Version 1)
Quarter: 2024Q2

REPORT INFORMATION
  Report Type: Spontaneous
  Country: US (occurrence: None)
  Receive Date: 20240524
  Receipt Date: 20240524
  Transmission Date: 20240716
  Serious: No
  Sender: FDA-Public Use
  Company Number: US-ROCHE-3394665

PATIENT
  Sex: Female

DRUGS (2)
  1. ACTEMRA [Suspect]
     Active Substance: TOCILIZUMAB
     Indication: Giant cell arteritis
     Route: 042
     Dates: start: 202305
  2. PREDNISONE [Suspect]
     Active Substance: PREDNISONE
     Indication: Product used for unknown indication
     Dosage: TAPERING DOWN TO CURRENT DOSING 5MG BID
     Route: 065

REACTIONS (7)
  - Red blood cell count decreased [Unknown]
  - White blood cell count decreased [Unknown]
  - Glaucoma [Unknown]
  - Diabetes mellitus [Unknown]
  - Ocular hypertension [Unknown]
  - Blood blister [Unknown]
  - Off label use [Unknown]

NARRATIVE: CASE EVENT DATE: 20230625
